FAERS Safety Report 23186817 (Version 1)
Quarter: 2023Q4

REPORT INFORMATION
  Report Type: Spontaneous
  Country: US (occurrence: US)
  Receive Date: 20231115
  Receipt Date: 20231115
  Transmission Date: 20240110
  Serious: Yes (Death, Other)
  Sender: FDA-Public Use
  Company Number: US-ENDO-CASE-0042032

PATIENT
  Sex: Female

DRUGS (2)
  1. PERCOCET [Suspect]
     Active Substance: ACETAMINOPHEN\OXYCODONE HYDROCHLORIDE
  2. ACETAMINOPHEN\HYDROCODONE BITARTRATE [Suspect]
     Active Substance: ACETAMINOPHEN\HYDROCODONE BITARTRATE

REACTIONS (19)
  - Death [Fatal]
  - Fall [Unknown]
  - Dizziness [Unknown]
  - Amnesia [Unknown]
  - Tooth loss [Unknown]
  - Agitation [Unknown]
  - Immune system disorder [Unknown]
  - Disorientation [Unknown]
  - Dysgraphia [Unknown]
  - Depression [Unknown]
  - Overdose [Unknown]
  - Gait disturbance [Unknown]
  - Photophobia [Unknown]
  - Mental disorder [Unknown]
  - Irritability [Unknown]
  - Aggression [Unknown]
  - Hyperaesthesia [Unknown]
  - Balance disorder [Unknown]
  - Mobility decreased [Unknown]
